FAERS Safety Report 8647696 (Version 2)
Quarter: 2012Q4

REPORT INFORMATION
  Report Type: Report from Study
  Country: JP (occurrence: JP)
  Receive Date: 20120703
  Receipt Date: 20121212
  Transmission Date: 20130627
  Serious: Yes (Hospitalization, Other)
  Sender: FDA-Public Use
  Company Number: JP-VERTEX PHARMACEUTICALS INC.-AE-2012-009393

PATIENT
  Age: 58 Year
  Sex: Male

DRUGS (15)
  1. VX-950 (TELAPREVIR) [Suspect]
     Indication: CHRONIC HEPATITIS C
     Dosage: 2250 mg, qd
     Route: 048
     Dates: start: 20120418, end: 20120522
  2. RIBAVIRIN [Suspect]
     Indication: CHRONIC HEPATITIS C
     Dosage: 600 mg, qd
     Route: 048
     Dates: start: 20120418, end: 20120508
  3. RIBAVIRIN [Suspect]
     Dosage: 400 mg, qd
     Route: 048
     Dates: start: 20120509, end: 20120522
  4. RIBAVIRIN [Suspect]
     Dosage: 400 mg, qd
     Route: 048
     Dates: start: 20120607, end: 20120624
  5. PEGINTERFERON ALFA-2B [Suspect]
     Indication: CHRONIC HEPATITIS C
     Dosage: 1.5 ?g/kg, qw
     Route: 058
     Dates: start: 20120418, end: 20120522
  6. PEGINTERFERON ALFA-2B [Suspect]
     Dosage: 1.5 ?g/kg, qw
     Route: 058
     Dates: start: 20120607, end: 20120624
  7. LOBU [Concomitant]
     Dosage: UNK, prn
     Route: 048
     Dates: start: 20120418
  8. LOBU [Concomitant]
     Dosage: 60 mg, prn
     Route: 048
     Dates: end: 20120613
  9. TAKEPRON [Concomitant]
     Dosage: 30 mg, qd
     Route: 048
     Dates: start: 20120418
  10. URSO                               /00465701/ [Concomitant]
     Dosage: 300 mg, qd
     Route: 048
  11. PRIMPERAN [Concomitant]
     Dosage: 5 mg, qd
     Route: 048
     Dates: end: 20120531
  12. ADONA                              /00056903/ [Concomitant]
     Dosage: 90 mg, qd
     Route: 048
     Dates: end: 20120620
  13. MIXTURE OF TOPICAL CREAM 0.05 % 30 G AND EURAX CREAM 10 % 10 G [Concomitant]
     Dosage: UNK, prn
     Route: 061
     Dates: start: 20120523
  14. ALEROFF [Concomitant]
     Dosage: 20 mg, qd
     Route: 048
     Dates: start: 20120618, end: 20120626
  15. ALLEGRA [Concomitant]
     Dosage: 120 mg, qd
     Route: 048
     Dates: start: 20120627, end: 20120711

REACTIONS (4)
  - White blood cell count decreased [Recovered/Resolved]
  - Decreased appetite [Recovered/Resolved]
  - Drug eruption [Recovered/Resolved]
  - Nausea [Recovered/Resolved]
